FAERS Safety Report 7364680-3 (Version None)
Quarter: 2011Q1

REPORT INFORMATION
  Report Type: 
  Country: None (occurrence: None)
  Receive Date: 20110315
  Receipt Date: 20110315
  Transmission Date: 20110831
  Serious: Yes (Hospitalization)
  Sender: FDA-Public Use
  Company Number: None

PATIENT
  Sex: Male
  Weight: 99.1 kg

DRUGS (6)
  1. SOLIRIS [Suspect]
     Indication: PROPHYLAXIS AGAINST TRANSPLANT REJECTION
     Dosage: 1200MG ONCE IV; 600MG 5 TIMES IV
     Route: 042
     Dates: start: 20100415
  2. SOLIRIS [Suspect]
     Indication: PROPHYLAXIS AGAINST TRANSPLANT REJECTION
     Dosage: 1200MG ONCE IV; 600MG 5 TIMES IV
     Route: 042
     Dates: start: 20100409
  3. SOLIRIS [Suspect]
     Indication: PROPHYLAXIS AGAINST TRANSPLANT REJECTION
     Dosage: 1200MG ONCE IV; 600MG 5 TIMES IV
     Route: 042
     Dates: start: 20100422
  4. SOLIRIS [Suspect]
     Indication: PROPHYLAXIS AGAINST TRANSPLANT REJECTION
     Dosage: 1200MG ONCE IV; 600MG 5 TIMES IV
     Route: 042
     Dates: start: 20100429
  5. SOLIRIS [Suspect]
     Indication: PROPHYLAXIS AGAINST TRANSPLANT REJECTION
     Dosage: 1200MG ONCE IV; 600MG 5 TIMES IV
     Route: 042
     Dates: start: 20100408
  6. SOLIRIS [Suspect]
     Indication: PROPHYLAXIS AGAINST TRANSPLANT REJECTION
     Dosage: 1200MG ONCE IV; 600MG 5 TIMES IV
     Route: 042
     Dates: start: 20100506

REACTIONS (4)
  - CHEST PAIN [None]
  - MITRAL VALVE INCOMPETENCE [None]
  - BLOOD CREATININE INCREASED [None]
  - THROMBOTIC MICROANGIOPATHY [None]
